FAERS Safety Report 8571243-0 (Version None)
Quarter: 2012Q3

REPORT INFORMATION
  Report Type: 
  Country: None (occurrence: None)
  Receive Date: 20120730
  Receipt Date: 20120730
  Transmission Date: 20120928
  Serious: Yes (Hospitalization)
  Sender: FDA-Public Use
  Company Number: None

PATIENT
  Age: 77 Year
  Sex: Male
  Weight: 79 kg

DRUGS (2)
  1. CARVEDILOL [Suspect]
     Indication: HYPERTENSION
     Dosage: 12.5 MG BID PO
     Route: 048
     Dates: start: 20120718, end: 20120720
  2. METOPROLOL TARTRATE [Suspect]
     Dosage: MG BID PO
     Route: 048

REACTIONS (1)
  - HYPOTENSION [None]
